FAERS Safety Report 8561329-9 (Version None)
Quarter: 2012Q3

REPORT INFORMATION
  Report Type: 
  Country: None (occurrence: None)
  Receive Date: 20120802
  Receipt Date: 20120726
  Transmission Date: 20120928
  Serious: Yes (Other)
  Sender: FDA-Public Use
  Company Number: JP-VERTEX PHARMACEUTICALS INC.-AE-2012-008786

PATIENT
  Age: 52 Year
  Sex: Male

DRUGS (7)
  1. RIBAVIRIN [Concomitant]
     Indication: HEPATITIS C
     Route: 048
     Dates: start: 20120308, end: 20120404
  2. TELAVIC (TELAPREVIR) [Suspect]
     Route: 048
     Dates: start: 20120330
  3. RIBAVIRIN [Concomitant]
     Route: 048
     Dates: start: 20120405
  4. FLUVASTATIN SODIUM [Concomitant]
     Route: 048
     Dates: start: 20120308, end: 20120517
  5. TELAVIC (TELAPREVIR) [Suspect]
     Indication: HEPATITIS C
     Route: 048
     Dates: start: 20120308, end: 20120329
  6. ALLEGRA [Concomitant]
     Route: 048
     Dates: start: 20120312
  7. PEGINTERFERON ALFA-2B [Concomitant]
     Indication: HEPATITIS C
     Route: 051
     Dates: start: 20120308

REACTIONS (1)
  - RETINAL HAEMORRHAGE [None]
